FAERS Safety Report 8002504-1 (Version None)
Quarter: 2011Q4

REPORT INFORMATION
  Report Type: 
  Country: None (occurrence: None)
  Receive Date: 20111222
  Receipt Date: 20110426
  Transmission Date: 20120403
  Serious: No
  Sender: FDA-Public Use
  Company Number: US-BRISTOL-MYERS SQUIBB COMPANY-15707201

PATIENT
  Sex: Male

DRUGS (1)
  1. CHOLESTYRAMINE [Suspect]
     Indication: DIARRHOEA
     Dosage: CHOLESTYRAMINE ORAL SUSPENSION POWDER
     Route: 048

REACTIONS (1)
  - DYSGEUSIA [None]
